FAERS Safety Report 18633861 (Version 2)
Quarter: 2021Q2

REPORT INFORMATION
  Report Type: Report from Study
  Country: US (occurrence: US)
  Receive Date: 20201218
  Receipt Date: 20210601
  Transmission Date: 20210717
  Serious: Yes (Other)
  Sender: FDA-Public Use
  Company Number: US-VERTEX PHARMACEUTICALS-2020-023264

PATIENT
  Age: 59 Year
  Sex: Female

DRUGS (14)
  1. CAYSTON [Concomitant]
     Active Substance: AZTREONAM
  2. VITRON?C [Concomitant]
     Active Substance: ASCORBIC ACID\IRON
  3. FLUOXETINE [Concomitant]
     Active Substance: FLUOXETINE HYDROCHLORIDE
  4. PULMOZYME [Concomitant]
     Active Substance: DORNASE ALFA
  5. CREON [Concomitant]
     Active Substance: PANCRELIPASE AMYLASE\PANCRELIPASE LIPASE\PANCRELIPASE PROTEASE
     Dosage: 24000 UNITS
  6. NOVOLOG [Concomitant]
     Active Substance: INSULIN ASPART
  7. AZITHROMYCIN ANHYDROUS. [Concomitant]
     Active Substance: AZITHROMYCIN ANHYDROUS
  8. NEXIUM I.V. [Concomitant]
     Active Substance: ESOMEPRAZOLE SODIUM
  9. ADVAIR HFA [Concomitant]
     Active Substance: FLUTICASONE PROPIONATE\SALMETEROL XINAFOATE
     Dosage: 500/50
  10. LORAZEPAM. [Concomitant]
     Active Substance: LORAZEPAM
  11. TRIKAFTA [Suspect]
     Active Substance: ELEXACAFTOR\IVACAFTOR\TEZACAFTOR
     Indication: CYSTIC FIBROSIS
     Dosage: 100MG ELEXACAFTOR/ 50MG TEZACAFTOR/ 75MG IVACAFTOR; 150MG IVACAFTOR, BID
     Route: 048
     Dates: start: 20200217
  12. TRIKAFTA [Suspect]
     Active Substance: ELEXACAFTOR\IVACAFTOR\TEZACAFTOR
     Dosage: AM DOSES DAILY AND PM DOSE 5 DOSE PER WEEK
     Route: 048
  13. XARELTO [Concomitant]
     Active Substance: RIVAROXABAN
  14. BASAGLAR [Concomitant]
     Active Substance: INSULIN GLARGINE

REACTIONS (5)
  - Depressed mood [Not Recovered/Not Resolved]
  - Aphasia [Not Recovered/Not Resolved]
  - Amnesia [Not Recovered/Not Resolved]
  - Feeling abnormal [Not Recovered/Not Resolved]
  - Memory impairment [Not Recovered/Not Resolved]

NARRATIVE: CASE EVENT DATE: 2020
